FAERS Safety Report 21158667 (Version 1)
Quarter: 2022Q3

REPORT INFORMATION
  Report Type: Spontaneous
  Country: US (occurrence: US)
  Receive Date: 20220802
  Receipt Date: 20220802
  Transmission Date: 20221027
  Serious: Yes (Hospitalization, Other)
  Sender: FDA-Public Use
  Company Number: US-SUN PHARMACEUTICAL INDUSTRIES LTD-2022R1-346712

PATIENT
  Age: 93 Year
  Sex: Male

DRUGS (1)
  1. FERROUS SULFATE [Suspect]
     Active Substance: FERROUS SULFATE
     Indication: Product used for unknown indication
     Dosage: UNK (BEFORE GOING TO BED)
     Route: 065

REACTIONS (5)
  - Foreign body aspiration [Recovered/Resolved]
  - Cough [Recovered/Resolved]
  - Mucosal discolouration [Recovered/Resolved]
  - Erythema [Recovered/Resolved]
  - Respiratory tract ulceration [Recovered/Resolved]
